FAERS Safety Report 7653154 (Version 6)
Quarter: 2013Q2

REPORT INFORMATION
  Report Type: Report from Study
  Country: US (occurrence: US)
  Receive Date: 20101102
  Receipt Date: 20130619
  Transmission Date: 20140414
  Serious: Yes (Hospitalization)
  Sender: FDA-Public Use
  Company Number: PHHO2010US16140

PATIENT
  Age: 44 Year
  Sex: Male
  Weight: 112 kg

DRUGS (10)
  1. BLINDED ALISKIREN [Suspect]
     Dosage: CODE NOT BROKEN
     Route: 048
     Dates: start: 20101116, end: 20120117
  2. BLINDED ENALAPRIL [Suspect]
     Dosage: CODE NOT BROKEN
     Route: 048
     Dates: start: 20101116, end: 20120117
  3. BLINDED NO TREATMENT RECEIVED [Suspect]
     Dosage: CODE NOT BROKEN
     Route: 048
     Dates: start: 20101116, end: 20120117
  4. ALISKIREN [Suspect]
     Indication: CARDIAC FAILURE
     Dosage: 10 MG, QD
     Route: 048
     Dates: start: 20100803, end: 20101017
  5. COMPARATOR ENALAPRIL [Suspect]
     Indication: CARDIAC FAILURE
     Dosage: 10 MG
     Route: 048
     Dates: start: 20100803, end: 20101017
  6. DIGOXIN [Suspect]
     Indication: CARDIAC FAILURE CONGESTIVE
     Dosage: UNK
     Dates: start: 20091113, end: 20101017
  7. DIGOXIN [Suspect]
     Dosage: 125 UG, UNK
     Dates: start: 20101102
  8. ALDACTONE [Concomitant]
     Indication: CARDIAC FAILURE CHRONIC
     Dosage: 20 MG, UNK
     Dates: start: 20091113
  9. METOPROLOL [Concomitant]
     Indication: CARDIAC FAILURE CHRONIC
     Dosage: 12.5 MG, UNK
  10. DOBUTAMINE [Concomitant]
     Indication: CARDIAC FAILURE CHRONIC
     Dosage: 3 UG/KG, UNK
     Dates: start: 201305

REACTIONS (7)
  - Renal failure [Recovered/Resolved]
  - Renal failure acute [Not Recovered/Not Resolved]
  - Dehydration [Recovered/Resolved]
  - Toxicity to various agents [Recovered/Resolved]
  - Diarrhoea [Recovered/Resolved]
  - Vomiting [Recovered/Resolved]
  - Nausea [Recovered/Resolved]
